FAERS Safety Report 6742201 (Version 6)
Quarter: 2013Q2

REPORT INFORMATION
  Report Type: Spontaneous
  Country: US (occurrence: US)
  Receive Date: 20080829
  Receipt Date: 20130523
  Transmission Date: 20140414
  Serious: Yes (Hospitalization, Other)
  Sender: FDA-Public Use
  Company Number: US-ROCHE-552220

PATIENT
  Age: 23 Year
  Sex: Female
  Weight: 45.4 kg

DRUGS (2)
  1. ACCUTANE [Suspect]
     Indication: ACNE
     Dosage: THE PATIENT WAS TAKING ACCUTANE 40 MG ONE DAILY
     Route: 048
     Dates: start: 199803, end: 199808
  2. ESTROSTEP [Concomitant]

REACTIONS (10)
  - Calculus ureteric [Unknown]
  - Colitis ulcerative [Unknown]
  - Inflammatory bowel disease [Unknown]
  - Depression [Unknown]
  - Colitis [Unknown]
  - Suicidal ideation [Unknown]
  - Influenza like illness [Unknown]
  - Night blindness [Unknown]
  - Headache [Unknown]
  - Irritable bowel syndrome [Unknown]
